FAERS Safety Report 10386719 (Version 1)
Quarter: 2014Q3

REPORT INFORMATION
  Report Type: Spontaneous
  Country: US (occurrence: US)
  Receive Date: 20140815
  Receipt Date: 20140815
  Transmission Date: 20150326
  Serious: No
  Sender: FDA-Public Use
  Company Number: US-BRISTOL-MYERS SQUIBB COMPANY-19622745

PATIENT
  Age: 54 Year
  Sex: Male

DRUGS (3)
  1. EPIVIR [Concomitant]
     Active Substance: LAMIVUDINE
  2. ZIDOVUDINE. [Concomitant]
     Active Substance: ZIDOVUDINE
  3. ZERIT [Suspect]
     Active Substance: STAVUDINE
     Indication: HIV INFECTION
     Dosage: 200-300MG QD
     Route: 048
     Dates: start: 1994, end: 2000

REACTIONS (2)
  - Fat redistribution [Not Recovered/Not Resolved]
  - Lipoatrophy [Not Recovered/Not Resolved]
